FAERS Safety Report 14353669 (Version 1)
Quarter: 2018Q1

REPORT INFORMATION
  Report Type: Spontaneous
  Country: CN (occurrence: CN)
  Receive Date: 20180105
  Receipt Date: 20180105
  Transmission Date: 20180509
  Serious: Yes (Other)
  Sender: FDA-Public Use
  Company Number: CN-ROCHE-2050238

PATIENT
  Age: 45 Year
  Sex: Female
  Weight: 49 kg

DRUGS (4)
  1. GIMERACIL [Suspect]
     Active Substance: GIMERACIL
     Indication: RECTAL CANCER
     Route: 065
  2. AVASTIN [Suspect]
     Active Substance: BEVACIZUMAB
     Indication: RECTAL CANCER
     Route: 041
     Dates: start: 20170919, end: 20170919
  3. TEGAFUR [Suspect]
     Active Substance: TEGAFUR
     Indication: RECTAL CANCER
     Route: 048
     Dates: start: 20170919, end: 20170922
  4. OTERACIL POTASSIUM [Suspect]
     Active Substance: OTERACIL POTASSIUM
     Indication: RECTAL CANCER
     Route: 065

REACTIONS (1)
  - Bone marrow failure [Recovering/Resolving]

NARRATIVE: CASE EVENT DATE: 20170921
